FAERS Safety Report 5256584-7 (Version None)
Quarter: 2007Q1

REPORT INFORMATION
  Report Type: 
  Country: None (occurrence: None)
  Receive Date: 20070306
  Receipt Date: 20070223
  Transmission Date: 20070707
  Serious: Yes (Hospitalization)
  Sender: FDA-Public Use
  Company Number: 2007SE00480

PATIENT
  Age: 67 Year
  Sex: Male

DRUGS (5)
  1. BLOPRESS [Suspect]
     Indication: HYPERTENSION
     Route: 048
     Dates: end: 20070109
  2. NORVASC [Suspect]
     Route: 048
     Dates: end: 20070109
  3. HARNAL [Suspect]
     Route: 048
     Dates: end: 20070109
  4. ALLOPURINOL [Suspect]
     Route: 048
     Dates: end: 20070109
  5. RINDERON [Concomitant]
     Route: 065

REACTIONS (2)
  - DERMATOMYOSITIS [None]
  - INTERSTITIAL LUNG DISEASE [None]
